FAERS Safety Report 17169831 (Version 9)
Quarter: 2021Q3

REPORT INFORMATION
  Report Type: Spontaneous
  Country: US (occurrence: US)
  Receive Date: 20191218
  Receipt Date: 20210721
  Transmission Date: 20211014
  Serious: No
  Sender: FDA-Public Use
  Company Number: US-PFIZER INC-2019541354

PATIENT
  Age: 74 Year
  Sex: Female
  Weight: 63.96 kg

DRUGS (15)
  1. DUREZOL [Concomitant]
     Active Substance: DIFLUPREDNATE
     Indication: INFLAMMATION
  2. BYSTOLIC [Concomitant]
     Active Substance: NEBIVOLOL HYDROCHLORIDE
     Indication: BLOOD PRESSURE ABNORMAL
     Dosage: 5 MG, 1X/DAY (5MG IN THE EVENING)
     Dates: start: 2014
  3. RESTASIS [Concomitant]
     Active Substance: CYCLOSPORINE
     Indication: DRY EYE
     Dosage: UNK
  4. KETOROLAC [Concomitant]
     Active Substance: KETOROLAC TROMETHAMINE
     Indication: MACULAR HOLE
     Dosage: 5 ML (0.5% 5ML EYE DROPS)
  5. IBRANCE [Suspect]
     Active Substance: PALBOCICLIB
     Dosage: 100 UNK
  6. PREDNISONE. [Suspect]
     Active Substance: PREDNISONE
     Dosage: UNK
  7. DILTIAZEM. [Concomitant]
     Active Substance: DILTIAZEM
     Indication: BLOOD PRESSURE ABNORMAL
     Dosage: 240 MG, 1X/DAY (240MG IN THE MORNING)
     Dates: start: 2014
  8. DUREZOL [Concomitant]
     Active Substance: DIFLUPREDNATE
     Indication: MACULAR HOLE
     Dosage: 5 ML (0.0% 5ML EYE DROPS)
  9. DORZOLAMIDE [Concomitant]
     Active Substance: DORZOLAMIDE
     Indication: GLAUCOMA
     Dosage: 10 ML (2% 10ML EYE DROPS)
  10. CARTEOLOL HCL [Concomitant]
     Active Substance: CARTEOLOL HYDROCHLORIDE
     Indication: GLAUCOMA
     Dosage: 5 ML (1% 5ML EYE DROPS)
  11. IBRANCE [Suspect]
     Active Substance: PALBOCICLIB
     Indication: BREAST CANCER FEMALE
     Dosage: 125 MG
  12. KETOROLAC [Concomitant]
     Active Substance: KETOROLAC TROMETHAMINE
     Indication: INFLAMMATION
  13. ESTALIS [Concomitant]
     Active Substance: ESTRADIOL\NORETHINDRONE ACETATE
     Dosage: 500 MG
  14. IBRANCE [Suspect]
     Active Substance: PALBOCICLIB
     Indication: BREAST CANCER METASTATIC
     Dosage: 125 MG, CYCLIC (TAKEN ONCE DAILY FOR 3 WEEKS THEN 1 WEEK OFF)
     Dates: start: 20200107, end: 20201019
  15. FASLODEX [Concomitant]
     Active Substance: FULVESTRANT
     Dosage: UNK, MONTHLY
     Dates: start: 201912

REACTIONS (10)
  - Inflammation [Recovering/Resolving]
  - Nausea [Recovering/Resolving]
  - Affective disorder [Unknown]
  - Epistaxis [Recovering/Resolving]
  - Pruritus [Recovering/Resolving]
  - Lung disorder [Recovering/Resolving]
  - Fatigue [Recovering/Resolving]
  - Stomatitis [Recovering/Resolving]
  - Pneumonitis [Unknown]
  - Dyspnoea [Recovering/Resolving]

NARRATIVE: CASE EVENT DATE: 202006
